FAERS Safety Report 6959595-6 (Version None)
Quarter: 2010Q3

REPORT INFORMATION
  Report Type: 
  Country: None (occurrence: None)
  Receive Date: 20100825
  Receipt Date: 20100810
  Transmission Date: 20110219
  Serious: Yes (Hospitalization, Other)
  Sender: FDA-Public Use
  Company Number: 129-21880-10052091

PATIENT
  Age: 58 Year
  Sex: Female

DRUGS (10)
  1. REVLIMID [Suspect]
     Indication: MULTIPLE MYELOMA
     Dosage: 25 MG, 1 IN 1 D, ORAL
     Route: 048
     Dates: start: 20100125, end: 20100411
  2. REVLIMID [Suspect]
     Indication: MULTIPLE MYELOMA
     Dosage: 25 MG, 1 IN 1 D, ORAL
     Route: 048
     Dates: start: 20100429, end: 20100520
  3. DEXAMETHASONE 9DEXAMETHASONE) (TABLETS) [Concomitant]
  4. LEVOTHYROXINE SODIUM [Concomitant]
  5. BISOCARD (BISOPROLOL FUMARATE) [Concomitant]
  6. METFORMAX (METFORMIN HYDROCHLORIDE) [Concomitant]
  7. RYTMONORM (PROPAFENONE HYDROCHLORIDE) [Concomitant]
  8. LMWH (HEPARIN-FRACTION, SODIUM SALT) [Concomitant]
  9. PLATELETS, CONCENTRATED (PLATELETS, CONCENTRATED) (INJECTION FOR INFUS [Concomitant]
  10. CORDARONE [Concomitant]

REACTIONS (7)
  - ATRIAL FLUTTER [None]
  - DEEP VEIN THROMBOSIS [None]
  - DISEASE PROGRESSION [None]
  - FEBRILE NEUTROPENIA [None]
  - HAEMATOMA [None]
  - MULTIPLE MYELOMA [None]
  - PANCYTOPENIA [None]
